FAERS Safety Report 7648049-X (Version None)
Quarter: 2011Q3

REPORT INFORMATION
  Report Type: 
  Country: None (occurrence: None)
  Receive Date: 20110801
  Receipt Date: 20110722
  Transmission Date: 20111222
  Serious: Yes (Hospitalization)
  Sender: FDA-Public Use
  Company Number: GB-AMGEN-GBRCT2011037355

PATIENT
  Age: 66 Year
  Sex: Male

DRUGS (10)
  1. PANITUMUMAB [Suspect]
     Indication: GASTROOESOPHAGEAL CANCER
     Dosage: UNK
     Dates: start: 20110315, end: 20110629
  2. FERROUS SULFATE TAB [Concomitant]
     Dosage: UNK UNK, BID
  3. HALOPERIDOL [Concomitant]
     Dosage: 1.5 MG, UNK
  4. EPIRUBICIN [Concomitant]
     Indication: GASTROOESOPHAGEAL CANCER
     Dosage: UNK
     Dates: start: 20110315, end: 20110629
  5. ASPIRIN [Concomitant]
     Dosage: 75 MG, UNK
  6. AMITRIPTYLINE HCL [Concomitant]
     Dosage: 30 MG, Q8H
  7. DIGOXIN [Concomitant]
     Dosage: 62.5 MG, UNK
  8. CAPECITABINE [Concomitant]
     Indication: GASTROOESOPHAGEAL CANCER
     Dosage: UNK
     Dates: start: 20110315, end: 20110629
  9. OXALIPLATIN [Concomitant]
     Indication: GASTROOESOPHAGEAL CANCER
     Dosage: UNK
     Dates: start: 20110315, end: 20110629
  10. MORPHINE SULFATE [Concomitant]

REACTIONS (2)
  - DIZZINESS [None]
  - ANAEMIA [None]
